FAERS Safety Report 15386578 (Version 1)
Quarter: 2018Q3

REPORT INFORMATION
  Report Type: Spontaneous
  Country: GR (occurrence: GR)
  Receive Date: 20180914
  Receipt Date: 20180914
  Transmission Date: 20181010
  Serious: Yes (Other)
  Sender: FDA-Public Use
  Company Number: GR-009507513-1809GRC000084

PATIENT
  Age: 65 Year
  Sex: Female

DRUGS (1)
  1. LIPTRUZET [Suspect]
     Active Substance: ATORVASTATIN CALCIUM\EZETIMIBE
     Indication: HYPERCHOLESTEROLAEMIA
     Dosage: 10/40 MG, UNK
     Route: 048
     Dates: start: 201711, end: 201804

REACTIONS (2)
  - Blood creatinine increased [Not Recovered/Not Resolved]
  - Prerenal failure [Unknown]
